FAERS Safety Report 16723193 (Version 1)
Quarter: 2019Q3

REPORT INFORMATION
  Report Type: Spontaneous
  Country: DE (occurrence: DE)
  Receive Date: 20190821
  Receipt Date: 20190821
  Transmission Date: 20191005
  Serious: Yes (Hospitalization)
  Sender: FDA-Public Use
  Company Number: DE-SA-2019SA222487

PATIENT
  Age: 63 Year
  Sex: Male

DRUGS (13)
  1. HYDROMORPHONE [Concomitant]
     Active Substance: HYDROMORPHONE
     Dosage: 8 MG, Q8H (1-1-1-0)
  2. FLUOROURACIL. [Suspect]
     Active Substance: FLUOROURACIL
     Dosage: 75 MG, UNK (LAST 07.03.2018)
     Route: 065
  3. METAMIZOLE [Concomitant]
     Active Substance: METAMIZOLE
     Dosage: 500 MG, QID (1-1-1-1)
  4. LACTULOSE. [Concomitant]
     Active Substance: LACTULOSE
     Dosage: UNK (NK MG (1-0-1-0))
  5. CALCIUMFOLINAT [Concomitant]
     Active Substance: LEUCOVORIN CALCIUM
     Dosage: 75 MG, UNK (LAST 07.03.2018)
  6. FLUOROURACIL. [Suspect]
     Active Substance: FLUOROURACIL
     Dosage: 4500 MG, UNK (LAST 07.03.2018)
     Route: 065
  7. IRINOTECAN [Suspect]
     Active Substance: IRINOTECAN
     Dosage: 340 MG, QCY(LAST 07.03.2018)
     Route: 065
  8. METAMIZOLE [Concomitant]
     Active Substance: METAMIZOLE
     Dosage: UNK
  9. MACROGOL [Concomitant]
     Active Substance: POLYETHYLENE GLYCOLS
     Dosage: UNK (13.125/0.351/0.179/0.047 G (1-0-1-0))
  10. LORAZEPAM. [Concomitant]
     Active Substance: LORAZEPAM
     Dosage: 1 MG, UNK (0-0-0-1 IF NECESSARY)
  11. FENTANYL. [Concomitant]
     Active Substance: FENTANYL
     Dosage: 200 UG, PRN
  12. OXALIPLATIN. [Suspect]
     Active Substance: OXALIPLATIN
     Dosage: 150 MG, QCY (LAST 07.03.2018)
     Route: 065
  13. ONDANSETRON [Concomitant]
     Active Substance: ONDANSETRON
     Dosage: UNK (NK MG)

REACTIONS (5)
  - Vomiting [Unknown]
  - Dyspepsia [Unknown]
  - Pain [Unknown]
  - Overdose [Unknown]
  - Abdominal pain upper [Unknown]
